FAERS Safety Report 4984541-4 (Version None)
Quarter: 2006Q2

REPORT INFORMATION
  Report Type: 
  Country: None (occurrence: None)
  Receive Date: 20060421
  Receipt Date: 20060405
  Transmission Date: 20061013
  Serious: Yes (Other)
  Sender: FDA-Public Use
  Company Number: DSA_28029_2006

PATIENT
  Age: 12 Month
  Weight: 10 kg

DRUGS (1)
  1. RENIVACE [Suspect]
     Dosage: 1.25 MG ONCE PO
     Route: 048
     Dates: start: 20060405, end: 20060405

REACTIONS (3)
  - ACCIDENTAL DRUG INTAKE BY CHILD [None]
  - ACCIDENTAL OVERDOSE [None]
  - NO ADVERSE EFFECT [None]
